FAERS Safety Report 10304663 (Version 4)
Quarter: 2015Q1

REPORT INFORMATION
  Report Type: Report from Study
  Country: AU (occurrence: AU)
  Receive Date: 20140715
  Receipt Date: 20150126
  Transmission Date: 20150720
  Serious: Yes (Hospitalization, Other)
  Sender: FDA-Public Use
  Company Number: AU-BRISTOL-MYERS SQUIBB COMPANY-20415188

PATIENT
  Age: 66 Year
  Sex: Female

DRUGS (4)
  1. PANADEINE FORTE [Concomitant]
     Active Substance: ACETAMINOPHEN\CODEINE PHOSPHATE
  2. ABATACEPT [Suspect]
     Active Substance: ABATACEPT
     Indication: RHEUMATOID ARTHRITIS
     Dosage: INTERRUPTED ON 05MAR14
     Route: 042
     Dates: start: 20111103
  3. PREDNISOLONE. [Concomitant]
     Active Substance: PREDNISOLONE
  4. CELEBREX [Concomitant]
     Active Substance: CELECOXIB

REACTIONS (3)
  - Nerve compression [Recovered/Resolved with Sequelae]
  - Hip fracture [Recovering/Resolving]
  - Fall [Unknown]

NARRATIVE: CASE EVENT DATE: 20140305
